FAERS Safety Report 11938460 (Version 1)
Quarter: 2016Q1

REPORT INFORMATION
  Report Type: Spontaneous
  Country: US (occurrence: US)
  Receive Date: 20160122
  Receipt Date: 20160122
  Transmission Date: 20160526
  Serious: No
  Sender: FDA-Public Use
  Company Number: US-PFIZER INC-2016009532

PATIENT
  Sex: Male

DRUGS (1)
  1. PRISTIQ EXTENDED RELEASE [Suspect]
     Active Substance: DESVENLAFAXINE SUCCINATE
     Dosage: LAST THREE DOSES WERE HALF OF EVERY OTHER DAY

REACTIONS (3)
  - Paraesthesia [Unknown]
  - Intentional product use issue [Unknown]
  - Feeling abnormal [Unknown]
